FAERS Safety Report 25084462 (Version 2)
Quarter: 2025Q2

REPORT INFORMATION
  Report Type: Spontaneous
  Country: JP (occurrence: JP)
  Receive Date: 20250317
  Receipt Date: 20250408
  Transmission Date: 20250717
  Serious: Yes (Other)
  Sender: PFIZER
  Company Number: JP-PFIZER INC-PV202500031244

PATIENT
  Age: 6 Decade
  Sex: Male

DRUGS (2)
  1. MEROPENEM [Suspect]
     Active Substance: MEROPENEM
     Route: 041
  2. RIFAMPIN [Suspect]
     Active Substance: RIFAMPIN
     Indication: Atypical mycobacterial infection
     Route: 065

REACTIONS (4)
  - Haemobilia [Unknown]
  - Cholecystitis acute [Unknown]
  - Cholangitis acute [Unknown]
  - Vitamin K deficiency [Unknown]
